FAERS Safety Report 4595547-1 (Version None)
Quarter: 2005Q1

REPORT INFORMATION
  Report Type: 
  Country: None (occurrence: None)
  Receive Date: 20050224
  Receipt Date: 20050204
  Transmission Date: 20050727
  Serious: Yes (Hospitalization)
  Sender: FDA-Public Use
  Company Number: USA041183143

PATIENT
  Age: 73 Year
  Sex: Female

DRUGS (5)
  1. FORTEO [Suspect]
     Indication: OSTEOPOROSIS
     Dates: start: 20040401
  2. ENBREL [Concomitant]
  3. LOPRESSOR [Concomitant]
  4. TRICOR [Concomitant]
  5. LIPITPOR (ATORVASTATIN) [Concomitant]

REACTIONS (3)
  - BLOOD CALCIUM ABNORMAL [None]
  - BRONCHITIS [None]
  - NEPHROCALCINOSIS [None]
